FAERS Safety Report 5871061-8 (Version None)
Quarter: 2008Q3

REPORT INFORMATION
  Report Type: 
  Country: None (occurrence: None)
  Receive Date: 20080904
  Receipt Date: 20080827
  Transmission Date: 20090109
  Serious: Yes (Hospitalization)
  Sender: FDA-Public Use
  Company Number: US-AMGEN-US296745

PATIENT
  Sex: Male
  Weight: 4 kg

DRUGS (10)
  1. ENBREL [Suspect]
     Route: 064
     Dates: start: 20070918, end: 20080418
  2. INFLUENZA VACCINE [Concomitant]
     Route: 064
     Dates: start: 20071215, end: 20071215
  3. VITAMIN TAB [Concomitant]
     Route: 064
     Dates: start: 20070918
  4. TRIAMCINOLONE [Concomitant]
     Route: 064
     Dates: start: 20070918, end: 20080506
  5. CLARITIN [Concomitant]
     Route: 064
     Dates: start: 20071218, end: 20080220
  6. UNSPECIFIED ANTIEMETIC [Concomitant]
     Route: 064
     Dates: start: 20080101
  7. UNSPECIFIED PAIN MEDICATION [Concomitant]
     Route: 064
     Dates: start: 20080101
  8. VANCOMYCIN HYDROCHLORIDE [Concomitant]
     Route: 064
     Dates: start: 20080419, end: 20080419
  9. AZTREONAM [Concomitant]
     Route: 064
     Dates: start: 20080419, end: 20080502
  10. TYLENOL (CAPLET) [Concomitant]
     Route: 064

REACTIONS (3)
  - FOETAL DISTRESS SYNDROME [None]
  - FOETAL HEART RATE DECREASED [None]
  - JAUNDICE NEONATAL [None]
